FAERS Safety Report 23834783 (Version 2)
Quarter: 2024Q2

REPORT INFORMATION
  Report Type: Spontaneous
  Country: US (occurrence: None)
  Receive Date: 20240509
  Receipt Date: 20240628
  Transmission Date: 20240716
  Serious: No
  Sender: FDA-Public Use
  Company Number: 2024A105311

PATIENT
  Age: 31 Year
  Sex: Male
  Weight: 104.8 kg

DRUGS (1)
  1. FASENRA [Suspect]
     Active Substance: BENRALIZUMAB
     Route: 058
     Dates: start: 20240428

REACTIONS (6)
  - Drug hypersensitivity [Unknown]
  - Night sweats [Unknown]
  - Asthenia [Unknown]
  - Nausea [Unknown]
  - Malaise [Unknown]
  - Eosinophil count increased [Unknown]

NARRATIVE: CASE EVENT DATE: 20240428
